FAERS Safety Report 9055989 (Version 1)
Quarter: 2013Q1

REPORT INFORMATION
  Report Type: Spontaneous
  Country: US (occurrence: US)
  Receive Date: 20130205
  Receipt Date: 20130205
  Transmission Date: 20140127
  Serious: Yes (Death, Hospitalization)
  Sender: FDA-Public Use
  Company Number: US-JNJFOC-20130114559

PATIENT
  Age: 12 Year
  Sex: Female

DRUGS (2)
  1. REMICADE [Suspect]
     Indication: COLITIS ULCERATIVE
     Dosage: PATIENT RECEIVED 3 TO 4 DOSE.
     Route: 042
     Dates: start: 2012
  2. STEROIDS NOS [Concomitant]
     Route: 065

REACTIONS (3)
  - Left ventricular hypertrophy [Fatal]
  - Haemoglobin abnormal [Fatal]
  - Cardiac failure [Fatal]
